FAERS Safety Report 8193331-3 (Version None)
Quarter: 2012Q1

REPORT INFORMATION
  Report Type: 
  Country: None (occurrence: None)
  Receive Date: 20120308
  Receipt Date: 20120305
  Transmission Date: 20120608
  Serious: Yes (Other)
  Sender: FDA-Public Use
  Company Number: US-PFIZER INC-2012049897

PATIENT
  Sex: Female
  Weight: 56.689 kg

DRUGS (9)
  1. PAXIL [Suspect]
     Indication: ANTIDEPRESSANT THERAPY
     Dosage: 5 MG, UNK
  2. CELEXA [Suspect]
     Indication: ANTIDEPRESSANT THERAPY
     Dosage: UNK
  3. BUDESONIDE [Concomitant]
     Indication: CHRONIC OBSTRUCTIVE PULMONARY DISEASE
     Dosage: 0.25 MG, 2X/DAY
  4. IPRATROPIUM BROMIDE [Concomitant]
     Indication: BRONCHIAL DISORDER
     Dosage: 0.2 %, 1X/DAY
  5. ATIVAN [Suspect]
     Indication: ANXIETY
     Dosage: 0.5 MG, 3X/DAY
  6. LEXAPRO [Suspect]
     Indication: ANTIDEPRESSANT THERAPY
     Dosage: UNK
  7. BROVANA [Concomitant]
     Indication: PULMONARY FIBROSIS
     Dosage: 15 UG, 2X/DAY
  8. ZOLOFT [Suspect]
     Indication: ANTIDEPRESSANT THERAPY
     Dosage: UNK
  9. PROZAC [Suspect]
     Indication: ANTIDEPRESSANT THERAPY
     Dosage: UNK

REACTIONS (4)
  - ANXIETY [None]
  - MANIA [None]
  - WEIGHT INCREASED [None]
  - INSOMNIA [None]
